FAERS Safety Report 19655036 (Version 1)
Quarter: 2021Q3

REPORT INFORMATION
  Report Type: Spontaneous
  Country: US (occurrence: US)
  Receive Date: 20210803
  Receipt Date: 20210803
  Transmission Date: 20211014
  Serious: Yes (Other)
  Sender: FDA-Public Use
  Company Number: US-COOPERSURGICAL, INC.-US-2021CPS002142

PATIENT
  Age: 39 Year
  Sex: Female
  Weight: 55.78 kg

DRUGS (1)
  1. PARAGARD T 380A [Suspect]
     Active Substance: COPPER
     Indication: CONTRACEPTION
     Dosage: UNK
     Route: 015
     Dates: start: 20210707, end: 20210707

REACTIONS (10)
  - Muscle spasms [Recovered/Resolved]
  - Procedural pain [Recovered/Resolved]
  - Device placement issue [Recovered/Resolved]
  - Fatigue [Recovered/Resolved]
  - Syncope [Recovered/Resolved]
  - Nausea [Recovered/Resolved]
  - Disorientation [Recovered/Resolved]
  - Pallor [Recovered/Resolved]
  - Vomiting [Recovered/Resolved]
  - Uterine spasm [Recovered/Resolved]

NARRATIVE: CASE EVENT DATE: 20210707
